FAERS Safety Report 5142819-8 (Version None)
Quarter: 2006Q4

REPORT INFORMATION
  Report Type: 
  Country: None (occurrence: None)
  Receive Date: 20061027
  Receipt Date: 20061010
  Transmission Date: 20070319
  Serious: Yes (Death, Hospitalization, Other)
  Sender: FDA-Public Use
  Company Number: US200609001939

PATIENT
  Age: 88 Year
  Sex: Female
  Weight: 44.9 kg

DRUGS (4)
  1. FORTEO [Suspect]
     Indication: OSTEOPOROSIS
     Dosage: 20 UG, DAILY (1/D), SUBCUTANEOUS
     Route: 058
     Dates: start: 20050801
  2. FORTEO [Concomitant]
  3. LIDODERM [Concomitant]
  4. OLMESARTAN MEDOXOMIL [Concomitant]

REACTIONS (13)
  - ASTHENIA [None]
  - DEHYDRATION [None]
  - DRUG ADMINISTRATION ERROR [None]
  - GASTROINTESTINAL MOTILITY DISORDER [None]
  - METASTASES TO LIVER [None]
  - OEDEMA PERIPHERAL [None]
  - OESOPHAGEAL CARCINOMA [None]
  - OESOPHAGEAL OBSTRUCTION [None]
  - ORAL INTAKE REDUCED [None]
  - PHARMACEUTICAL PRODUCT COMPLAINT [None]
  - RETCHING [None]
  - SPINAL COMPRESSION FRACTURE [None]
  - VOMITING [None]
